FAERS Safety Report 7675698-5 (Version None)
Quarter: 2011Q3

REPORT INFORMATION
  Report Type: 
  Country: None (occurrence: None)
  Receive Date: 20110810
  Receipt Date: 20110801
  Transmission Date: 20111222
  Serious: Yes (Hospitalization)
  Sender: FDA-Public Use
  Company Number: FR-ASTRAZENECA-2011SE46363

PATIENT
  Sex: Male

DRUGS (8)
  1. ACETAMINOPHEN [Suspect]
     Route: 048
     Dates: start: 20101001, end: 20101217
  2. MYAMBUTOL [Concomitant]
     Route: 048
     Dates: start: 20101025
  3. RIMIFON [Suspect]
     Route: 048
     Dates: start: 20101025, end: 20101217
  4. IRBESARTAN [Concomitant]
     Route: 048
     Dates: start: 20101001
  5. OFLOXACIN [Concomitant]
     Route: 048
     Dates: start: 20101102
  6. FUROSEMIDE [Concomitant]
     Route: 048
  7. NEXIUM [Suspect]
     Route: 048
     Dates: start: 20101001, end: 20101217
  8. IMOVANE [Concomitant]
     Route: 048

REACTIONS (3)
  - CELL DEATH [None]
  - CHOLESTASIS [None]
  - JAUNDICE [None]
